FAERS Safety Report 4325676-9 (Version None)
Quarter: 2004Q1

REPORT INFORMATION
  Report Type: 
  Country: None (occurrence: None)
  Receive Date: 20040324
  Receipt Date: 20040316
  Transmission Date: 20041129
  Serious: Yes (Other)
  Sender: FDA-Public Use
  Company Number: 200314596BCC

PATIENT
  Age: 67 Year
  Sex: Female
  Weight: 64.8644 kg

DRUGS (6)
  1. EXTRA STRENTH BAYER BACK+ BODY PAIN [Suspect]
     Indication: PAIN
     Dosage: 1000/65 MG, ONCE, ORAL
     Route: 048
     Dates: start: 20031206
  2. CARDIZEM [Concomitant]
  3. INDAPAMIDE [Concomitant]
  4. DIOVAN [Concomitant]
  5. RANITIDINE [Concomitant]
  6. AMARYL [Concomitant]

REACTIONS (1)
  - BLOOD PRESSURE INCREASED [None]
